FAERS Safety Report 22390076 (Version 3)
Quarter: 2023Q4

REPORT INFORMATION
  Report Type: Other
  Country: IT (occurrence: IT)
  Receive Date: 20230531
  Receipt Date: 20231109
  Transmission Date: 20240110
  Serious: Yes (Other)
  Sender: FDA-Public Use
  Company Number: IT-ROCHE-3347821

PATIENT

DRUGS (10)
  1. TAFASITAMAB [Suspect]
     Active Substance: TAFASITAMAB
     Indication: Diffuse large B-cell lymphoma
     Dosage: THIRD LINE SYSTEMIC TREATMENT, TAFASITAMAB-LENALIDOMIDE
     Route: 065
     Dates: start: 20230217, end: 20230509
  2. LENALIDOMIDE [Suspect]
     Active Substance: LENALIDOMIDE
     Indication: Diffuse large B-cell lymphoma
     Dosage: THIRD LINE SYSTEMIC TREATMENT, TAFASITAMAB-LENALIDOMIDE
     Route: 065
     Dates: start: 20230217, end: 20230509
  3. RITUXIMAB [Suspect]
     Active Substance: RITUXIMAB
     Indication: Diffuse large B-cell lymphoma
     Dosage: FIRST LINE SYSTEMIC TREATMENT, RITUXIMAB-COMP
     Route: 065
     Dates: start: 20220713, end: 20220926
  4. RITUXIMAB [Suspect]
     Active Substance: RITUXIMAB
     Dosage: SECOND LINE SYSTEMIC TREATMENT, POLATUZUMAB BR
     Route: 065
     Dates: start: 20221102, end: 20221214
  5. CYCLOPHOSPHAMIDE [Suspect]
     Active Substance: CYCLOPHOSPHAMIDE
     Indication: Diffuse large B-cell lymphoma
     Dosage: FIRST LINE SYSTEMIC TREATMENT, RITUXIMAB-COMP
     Route: 065
     Dates: start: 20220713, end: 20220926
  6. VINCRISTINE [Suspect]
     Active Substance: VINCRISTINE
     Indication: Diffuse large B-cell lymphoma
     Dosage: FIRST LINE SYSTEMIC TREATMENT, RITUXIMAB-COMP
     Route: 065
     Dates: start: 20220713, end: 20220926
  7. DOXORUBICIN [Suspect]
     Active Substance: DOXORUBICIN
     Indication: Diffuse large B-cell lymphoma
     Dosage: FIRST LINE SYSTEMIC TREATMENT, RITUXIMAB-COMP, INTRAVENOUS
     Route: 065
     Dates: start: 20220713, end: 20220926
  8. PREDNISONE [Suspect]
     Active Substance: PREDNISONE
     Indication: Diffuse large B-cell lymphoma
     Dosage: FIRST LINE SYSTEMIC TREATMENT, RITUXIMAB-COMP
     Route: 065
     Dates: start: 20220713, end: 20220926
  9. BENDAMUSTINE [Suspect]
     Active Substance: BENDAMUSTINE
     Indication: Diffuse large B-cell lymphoma
     Dosage: SECOND LINE SYSTEMIC TREATMENT, POLATUZUMAB BR
     Route: 065
     Dates: start: 20221102, end: 20221214
  10. POLATUZUMAB VEDOTIN [Suspect]
     Active Substance: POLATUZUMAB VEDOTIN
     Indication: Diffuse large B-cell lymphoma
     Dosage: SECOND LINE SYSTEMIC TREATMENT, POLATUZUMAB BR
     Route: 065
     Dates: start: 20221102, end: 20221214

REACTIONS (5)
  - Urosepsis [Recovered/Resolved]
  - Bacterial disease carrier [Unknown]
  - Cytomegalovirus infection reactivation [Unknown]
  - Catheter site thrombosis [Unknown]
  - Disease progression [Unknown]

NARRATIVE: CASE EVENT DATE: 20220731
